FAERS Safety Report 5342316-0 (Version None)
Quarter: 2007Q2

REPORT INFORMATION
  Report Type: 
  Country: None (occurrence: None)
  Receive Date: 20070601
  Receipt Date: 20070523
  Transmission Date: 20071010
  Serious: Yes (Death)
  Sender: FDA-Public Use
  Company Number: JP-SANOFI-SYNTHELABO-A01200705711

PATIENT
  Sex: Male

DRUGS (3)
  1. FLUOROURACIL [Suspect]
     Indication: LARGE INTESTINE CARCINOMA
     Dosage: UNK
     Route: 042
     Dates: start: 20070424, end: 20070425
  2. ISOVORIN [Suspect]
     Indication: LARGE INTESTINE CARCINOMA
     Dosage: UNK
     Route: 042
     Dates: start: 20070424, end: 20070425
  3. OXALIPLATIN [Suspect]
     Indication: LARGE INTESTINE CARCINOMA
     Route: 041
     Dates: start: 20070424, end: 20070424

REACTIONS (1)
  - UPPER GASTROINTESTINAL HAEMORRHAGE [None]
